FAERS Safety Report 7529620-2 (Version None)
Quarter: 2011Q2

REPORT INFORMATION
  Report Type: 
  Country: None (occurrence: None)
  Receive Date: 20110607
  Receipt Date: 20110527
  Transmission Date: 20111010
  Serious: Yes (Life-Threatening, Hospitalization, Other)
  Sender: FDA-Public Use
  Company Number: A0806036A

PATIENT
  Sex: Female
  Weight: 65 kg

DRUGS (7)
  1. TRASTUZUMAB [Suspect]
     Indication: BREAST CANCER
     Dosage: 6MGK EVERY 3 WEEKS
     Route: 042
     Dates: start: 20090826, end: 20090826
  2. LAPATINIB [Suspect]
     Indication: BREAST CANCER
     Dosage: 1000MG PER DAY
     Route: 048
     Dates: start: 20090826, end: 20090828
  3. CAPTOPRIL [Concomitant]
     Indication: HYPERTENSION
     Dosage: 25MG THREE TIMES PER DAY
     Route: 048
     Dates: start: 19910101
  4. TICLOPIDINE HCL [Concomitant]
     Dosage: 250MG PER DAY
     Route: 048
     Dates: start: 20000101
  5. PRINIVIL [Concomitant]
     Indication: HYPERTENSION
     Dosage: 5MG PER DAY
     Route: 048
     Dates: start: 19910101
  6. AMITRIPTYLINE HCL [Concomitant]
     Indication: DEPRESSION
     Dosage: 25MG PER DAY
     Route: 048
     Dates: start: 19990101
  7. DIABINESE [Concomitant]
     Dosage: 250MG TWICE PER DAY
     Route: 048
     Dates: start: 19910101

REACTIONS (9)
  - PULMONARY CONGESTION [None]
  - DYSPNOEA [None]
  - BRONCHOSPASM [None]
  - DISEASE PROGRESSION [None]
  - METASTASES TO LIVER [None]
  - PLEURAL EFFUSION [None]
  - CARDIAC FAILURE [None]
  - PNEUMONIA [None]
  - HAEMODYNAMIC INSTABILITY [None]
